FAERS Safety Report 14542235 (Version 1)
Quarter: 2018Q1

REPORT INFORMATION
  Report Type: Spontaneous
  Country: US (occurrence: US)
  Receive Date: 20180216
  Receipt Date: 20180216
  Transmission Date: 20180509
  Serious: Yes (Life-Threatening)
  Sender: FDA-Public Use
  Company Number: None

PATIENT
  Age: 39 Year
  Sex: Female
  Weight: 98.25 kg

DRUGS (1)
  1. ARIPIPAZOLE [Suspect]
     Active Substance: ARIPIPRAZOLE
     Indication: PRODUCT USED FOR UNKNOWN INDICATION
     Dosage: 5MG QP PO
     Route: 048

REACTIONS (4)
  - Gambling [None]
  - Economic problem [None]
  - Major depression [None]
  - Suicidal ideation [None]
